FAERS Safety Report 16655031 (Version 2)
Quarter: 2019Q3

REPORT INFORMATION
  Report Type: Spontaneous
  Country: US (occurrence: US)
  Receive Date: 20190801
  Receipt Date: 20190806
  Transmission Date: 20191004
  Serious: Yes (Hospitalization)
  Sender: FDA-Public Use
  Company Number: US-JNJFOC-20190739099

PATIENT
  Age: 19 Year
  Sex: Male

DRUGS (1)
  1. PARACETAMOL [Suspect]
     Active Substance: ACETAMINOPHEN
     Indication: PYREXIA
     Dosage: } 8 HR {= 24 HR; AMOUNT OF EXPOSURE: 12 TABSPILLSCAPSULES
     Route: 048
     Dates: start: 201907

REACTIONS (7)
  - Intentional overdose [Unknown]
  - Intentional product misuse [Unknown]
  - Aspartate aminotransferase increased [Recovering/Resolving]
  - Mental status changes [Recovering/Resolving]
  - Nausea [Recovering/Resolving]
  - Vomiting [Recovering/Resolving]
  - Alanine aminotransferase increased [Recovering/Resolving]

NARRATIVE: CASE EVENT DATE: 201907
